FAERS Safety Report 7394186-7 (Version None)
Quarter: 2011Q2

REPORT INFORMATION
  Report Type: 
  Country: None (occurrence: None)
  Receive Date: 20110405
  Receipt Date: 20110324
  Transmission Date: 20111010
  Serious: Yes (Hospitalization)
  Sender: FDA-Public Use
  Company Number: CA-ELI_LILLY_AND_COMPANY-CA201103001991

PATIENT
  Age: 60 Year
  Sex: Female

DRUGS (20)
  1. VITAMIN D [Concomitant]
     Dosage: UNK, UNKNOWN
     Route: 065
  2. CALCIUM CARBONATE [Concomitant]
     Dosage: UNK, UNKNOWN
     Route: 065
  3. LACTULOSE [Concomitant]
     Dosage: UNK, UNKNOWN
     Route: 065
  4. ADVAIR DISKUS 100/50 [Concomitant]
     Dosage: UNK, UNKNOWN
     Route: 065
  5. GABAPENTIN [Concomitant]
     Dosage: UNK, UNKNOWN
     Route: 065
  6. ASPIRIN [Concomitant]
     Dosage: UNK, UNKNOWN
     Route: 065
  7. NORVASC [Concomitant]
     Dosage: UNK, UNKNOWN
     Route: 065
  8. ATROVENT [Concomitant]
     Dosage: UNK, UNKNOWN
     Route: 065
  9. CELEXA [Concomitant]
     Dosage: UNK, UNKNOWN
     Route: 065
  10. RABEPRAZOLE SODIUM [Concomitant]
     Dosage: UNK, UNKNOWN
     Route: 065
  11. MAGNESIUM [Concomitant]
     Dosage: UNK, UNKNOWN
     Route: 065
  12. DILAUDID [Concomitant]
     Dosage: UNK, UNKNOWN
     Route: 065
  13. FORTEO [Suspect]
     Indication: OSTEOPOROSIS
     Dosage: 20 UG, DAILY (1/D)
     Route: 058
     Dates: start: 20100505
  14. SENOKOT [Concomitant]
     Dosage: UNK, UNKNOWN
     Route: 065
  15. PREDNISONE [Concomitant]
     Dosage: UNK, UNKNOWN
     Route: 065
  16. GLUCOSAMINE [Concomitant]
     Dosage: UNK, UNKNOWN
     Route: 065
  17. RAMIPRIL [Concomitant]
     Dosage: UNK, UNKNOWN
     Route: 065
  18. DICLOFENAC SODIUM [Concomitant]
     Dosage: UNK, UNKNOWN
     Route: 065
  19. HYDROMORPHONE HCL [Concomitant]
     Dosage: UNK, UNKNOWN
     Route: 065
  20. SALBUTAMOL [Concomitant]
     Dosage: UNK, UNKNOWN
     Route: 065

REACTIONS (2)
  - EMPHYSEMA [None]
  - JOINT STIFFNESS [None]
